FAERS Safety Report 20856244 (Version 1)
Quarter: 2022Q2

REPORT INFORMATION
  Report Type: Spontaneous
  Country: None (occurrence: US)
  Receive Date: 20220520
  Receipt Date: 20220520
  Transmission Date: 20220721
  Serious: No
  Sender: FDA-Public Use
  Company Number: US-GREER Laboratories, Inc.-2129003

PATIENT
  Age: 41 Year
  Sex: Female

DRUGS (78)
  1. STANDARDIZED CAT HAIR [Suspect]
     Active Substance: FELIS CATUS HAIR
     Indication: Rhinitis allergic
     Route: 003
     Dates: start: 20220204
  2. STANDARDIZED CAT HAIR [Suspect]
     Active Substance: FELIS CATUS HAIR
     Route: 003
     Dates: start: 20220204
  3. CANIS LUPUS FAMILIARIS SKIN [Suspect]
     Active Substance: CANIS LUPUS FAMILIARIS SKIN
     Route: 003
     Dates: start: 20220204
  4. MUS MUSCULUS SKIN [Suspect]
     Active Substance: MUS MUSCULUS SKIN
     Route: 003
     Dates: start: 20220204
  5. ANIMAL ALLERGENS, FEATHER MIX [Suspect]
     Active Substance: ANAS PLATYRHYNCHOS FEATHER\ANSER ANSER FEATHER\GALLUS GALLUS FEATHER
     Route: 003
     Dates: start: 20220204
  6. EGG WHITE [Suspect]
     Active Substance: EGG WHITE
     Route: 003
     Dates: start: 20220204
  7. LAMB [Suspect]
     Active Substance: LAMB
     Route: 003
     Dates: start: 20220204
  8. COW MILK [Suspect]
     Active Substance: COW MILK
     Route: 003
     Dates: start: 20220204
  9. SOYBEAN FOOD [Suspect]
     Active Substance: SOYBEAN
     Route: 003
     Dates: start: 20220204
  10. WHEAT [Suspect]
     Active Substance: WHEAT
     Route: 003
     Dates: start: 20220204
  11. SOYBEAN FOOD [Suspect]
     Active Substance: SOYBEAN
     Route: 003
     Dates: start: 20220204
  12. SOYBEAN FOOD [Suspect]
     Active Substance: SOYBEAN
     Route: 003
     Dates: start: 20220204
  13. FOOD - PLANT SOURCE, PEACH PRUNUS PERSICA [Suspect]
     Active Substance: PEACH
     Route: 003
     Dates: start: 20220204
  14. BROCCOLI [Suspect]
     Active Substance: BROCCOLI
     Route: 003
     Dates: start: 20220204
  15. MUSTARD FOOD [Suspect]
     Active Substance: WHITE MUSTARD SEED
     Route: 003
     Dates: start: 20220204
  16. SESAME SEED [Suspect]
     Active Substance: SESAME SEED
     Route: 003
     Dates: start: 20220204
  17. TURKEY MEAT [Suspect]
     Active Substance: TURKEY
     Route: 003
     Dates: start: 20220204
  18. WATERMELON [Suspect]
     Active Substance: WATERMELON
     Route: 003
     Dates: start: 20220204
  19. FOOD - ANIMAL PRODUCTS AND POULTRY PRODUCTS, PORK SUS SP. [Suspect]
     Active Substance: PORK
     Route: 003
     Dates: start: 20220204
  20. FOOD - ANIMAL PRODUCTS AND POULTRY PRODUCTS, CHICKEN MEAT GALLUS SP. [Suspect]
     Active Substance: POULTRY
     Route: 003
     Dates: start: 20220204
  21. FOOD - PLANT SOURCE, CORN ZEA MAYS [Suspect]
     Active Substance: CORN
     Route: 003
     Dates: start: 20220204
  22. FOOD - PLANT SOURCE, POTATO, WHITE SOLANUM TUBEROSUM [Suspect]
     Active Substance: POTATO
     Route: 003
     Dates: start: 20220204
  23. FOOD - PLANT SOURCE, TOMATO NICOTIANA SPP. [Suspect]
     Active Substance: TOMATO
     Route: 003
     Dates: start: 20220204
  24. FOOD - PLANT SOURCE, CARROT DAUCUS CAROTA [Suspect]
     Active Substance: CARROT
     Route: 003
     Dates: start: 20220204
  25. FOOD - PLANT SOURCE, APPLE MALUS SP. [Suspect]
     Active Substance: APPLE
     Route: 003
     Dates: start: 20220204
  26. FOOD - PLANT SOURCE, BANANA MUSA SAPIENTUM [Suspect]
     Active Substance: BANANA
     Route: 003
     Dates: start: 20220204
  27. COCONUT [Suspect]
     Active Substance: COCONUT
     Route: 003
     Dates: start: 20220204
  28. FOOD - PLANT SOURCE, PEANUT ARACHIS HYPOGAEA [Suspect]
     Active Substance: PEANUT
     Route: 003
     Dates: start: 20220204
  29. SHELLFISH MIX [Suspect]
     Active Substance: BLUE CRAB\EASTERN OYSTER\NORTHERN BROWN SHRIMP\NORTHERN QUAHOG\SEA SCALLOP
     Route: 003
     Dates: start: 20220204
  30. COCOA [Suspect]
     Active Substance: COCOA
     Route: 003
     Dates: start: 20220204
  31. CAULIFLOWER [Suspect]
     Active Substance: CAULIFLOWER
     Route: 003
     Dates: start: 20220204
  32. COFFEE [Suspect]
     Active Substance: ARABICA COFFEE BEAN\COFFEE BEAN
     Route: 003
     Dates: start: 20220204
  33. VANILLA [Suspect]
     Active Substance: VANILLA
     Route: 003
     Dates: start: 20220204
  34. CINNAMON [Suspect]
     Active Substance: CINNAMON
     Route: 003
     Dates: start: 20220204
  35. RHIZOPUS MIX [Suspect]
     Active Substance: RHIZOPUS ARRHIZUS\RHIZOPUS STOLONIFER
     Route: 003
     Dates: start: 20220204
  36. FUSARIUM MIX [Suspect]
     Active Substance: GIBBERELLA FUJIKUROI\HAEMATONECTRIA HAEMATOCOCCA
     Route: 003
     Dates: start: 20220204
  37. MUCOR MIX [Suspect]
     Active Substance: MUCOR CIRCINELLOIDES F. LUSITANICUS\MUCOR PLUMBEUS
     Route: 003
     Dates: start: 20220204
  38. CLADOSPORIUM HERBARUM [Suspect]
     Active Substance: CLADOSPORIUM HERBARUM
     Route: 003
     Dates: start: 20220204
  39. PLEOSPORA BETAE [Suspect]
     Active Substance: PLEOSPORA BETAE
     Route: 003
     Dates: start: 20220204
  40. MOLDS, RUSTS AND SMUTS, CEPHALOSPORIUM ACREMONIUM [Suspect]
     Active Substance: ACREMONIUM STRICTUM
     Route: 003
     Dates: start: 20220204
  41. MOLDS, RUSTS AND SMUTS, ALTERNARIA TENUIS (ALTERNATA) [Suspect]
     Active Substance: ALTERNARIA ALTERNATA
     Route: 003
     Dates: start: 20220204
  42. MOLDS, RUSTS AND SMUTS, BOTRYTIS CINEREA [Suspect]
     Active Substance: BOTRYTIS CINEREA
     Route: 003
     Dates: start: 20220204
  43. HAEMATONECTRIA HAEMATOCOCCA [Suspect]
     Active Substance: HAEMATONECTRIA HAEMATOCOCCA
     Route: 003
     Dates: start: 20220204
  44. MOLDS, RUSTS AND SMUTS, PENICILLIUM NOTATUM [Suspect]
     Active Substance: PENICILLIUM CHRYSOGENUM VAR. CHRYSOGENUM
     Route: 003
     Dates: start: 20220204
  45. MOLDS, RUSTS AND SMUTS, ASPERGILLUS FUMIGATUS [Suspect]
     Active Substance: ASPERGILLUS FUMIGATUS
     Route: 003
     Dates: start: 20220204
  46. AUREOBASIDIUM PULLULANS VAR. PULLUTANS [Suspect]
     Active Substance: AUREOBASIDIUM PULLULANS VAR. PULLUTANS
     Route: 003
     Dates: start: 20220204
  47. COCHLIOBOLUS SATIVUS [Suspect]
     Active Substance: COCHLIOBOLUS SATIVUS
     Route: 003
     Dates: start: 20220204
  48. CLADOSPORIUM SPHAEROSPERMUM [Suspect]
     Active Substance: CLADOSPORIUM SPHAEROSPERMUM
     Route: 003
     Dates: start: 20220204
  49. COCHLIOBOLUS SPICIFER [Suspect]
     Active Substance: COCHLIOBOLUS SPICIFER
     Route: 003
     Dates: start: 20220204
  50. STANDARDIZED GRASS POLLEN, GRASS MIX 7 [Suspect]
     Active Substance: AGROSTIS GIGANTEA POLLEN\ANTHOXANTHUM ODORATUM POLLEN\DACTYLIS GLOMERATA POLLEN\FESTUCA PRATENSIS PO
     Route: 003
     Dates: start: 20220204
  51. POLLENS - GRASSES, JOHNSON GRASS SORGHUM HALEPENSE [Suspect]
     Active Substance: SORGHUM HALEPENSE POLLEN
     Route: 003
     Dates: start: 20220204
  52. INSECTS (WHOLE BODY) COCKROACH MIX [Suspect]
     Active Substance: BLATELLA GERMANICA\PERIPLANETA AMERICANA
     Route: 003
     Dates: start: 20220204
  53. STANDARDIZED MITE DERMATOPHAGOIDES FARINAE [Suspect]
     Active Substance: DERMATOPHAGOIDES FARINAE
     Route: 003
     Dates: start: 20220204
  54. STANDARDIZED MITE DERMATOPHAGOIDES PTERONYSSINUS [Suspect]
     Active Substance: DERMATOPHAGOIDES PTERONYSSINUS
     Route: 003
     Dates: start: 20220204
  55. POLLENS - TREES, BOXELDER/MAPLE MIX [Suspect]
     Active Substance: ACER NEGUNDO POLLEN\ACER RUBRUM POLLEN\ACER SACCHARUM POLLEN
     Route: 003
     Dates: start: 20220204
  56. ASH MIXTURE [Suspect]
     Active Substance: FRAXINUS AMERICANA POLLEN\FRAXINUS PENNSYLVANICA POLLEN
     Route: 003
     Dates: start: 20220204
  57. QUERCUS ALBA POLLEN\QUERCUS RUBRA POLLEN\QUERCUS VELUTINA POLLEN [Suspect]
     Active Substance: QUERCUS ALBA POLLEN\QUERCUS RUBRA POLLEN\QUERCUS VELUTINA POLLEN
     Route: 003
     Dates: start: 20220204
  58. POLLENS - TREES, HACKBERRY CELTIS OCCIDENTALIS [Suspect]
     Active Substance: CELTIS OCCIDENTALIS POLLEN
     Route: 003
     Dates: start: 20220204
  59. EASTERN WHITE PINE POLLEN [Suspect]
     Active Substance: PINUS STROBUS POLLEN
     Route: 003
     Dates: start: 20220204
  60. FOOD - PLANT SOURCE, WALNUT, BLACK JUGLANS NIGRA [Suspect]
     Active Substance: BLACK WALNUT
     Route: 003
     Dates: start: 20220204
  61. POPULUS DELTOIDES POLLEN [Suspect]
     Active Substance: POPULUS DELTOIDES POLLEN
     Route: 003
     Dates: start: 20220204
  62. POLLENS - TREES, WILLOW, BLACK SALIX NIGRA [Suspect]
     Active Substance: SALIX NIGRA POLLEN
     Route: 003
     Dates: start: 20220204
  63. MORUS ALBA POLLEN [Suspect]
     Active Substance: MORUS ALBA POLLEN
     Route: 003
     Dates: start: 20220204
  64. POLLENS - TREES, CEDAR, RED JUNIPERUS VIRGINIANA [Suspect]
     Active Substance: JUNIPERUS VIRGINIANA POLLEN
     Route: 003
     Dates: start: 20220204
  65. POLLENS - TREES, SYCAMORE, AMERICAN (EASTERN) PLATANUS OCCIDENTALLIS [Suspect]
     Active Substance: PLATANUS OCCIDENTALIS POLLEN
     Route: 003
     Dates: start: 20220204
  66. SORREL/DOCK MIX [Suspect]
     Active Substance: RUMEX ACETOSELLA WHOLE\RUMEX CRISPUS
     Route: 003
     Dates: start: 20220204
  67. PIGWEED MIX [Suspect]
     Active Substance: AMARANTHUS HYBRIDUS POLLEN\AMARANTHUS PALMERI POLLEN\AMARANTHUS RETROFLEXUS POLLEN
     Route: 003
     Dates: start: 20220204
  68. WESTERN RAGWEED MIX [Suspect]
     Active Substance: AMBROSIA ACANTHICARPA POLLEN\AMBROSIA PSILOSTACHYA POLLEN
     Route: 003
     Dates: start: 20220204
  69. POLLENS - WEEDS AND GARDEN PLANTS, COCKLEBUR XANTHIUM STRUMARIUM [Suspect]
     Active Substance: XANTHIUM STRUMARIUM POLLEN
     Route: 003
     Dates: start: 20220204
  70. IVA ANNUA POLLEN [Suspect]
     Active Substance: IVA ANNUA POLLEN
     Route: 003
     Dates: start: 20220204
  71. POLLENS - WEEDS AND GARDEN PLANTS, SAGEBRUSH, MUGWORT ARTEMISIA VULGAR [Suspect]
     Active Substance: ARTEMISIA VULGARIS POLLEN
     Route: 003
     Dates: start: 20220204
  72. POLLENS - WEEDS AND GARDEN PLANTS, NETTLE URTICA DIOICA [Suspect]
     Active Substance: URTICA DIOICA POLLEN
     Route: 003
     Dates: start: 20220204
  73. POLLENS - WEEDS AND GARDEN PLANTS, RUSSIAN THISTLE SALSOLA KALI [Suspect]
     Active Substance: SALSOLA KALI POLLEN
     Route: 003
     Dates: start: 20220204
  74. POLLENS - WEEDS AND GARDEN PLANTS, PLANTAIN, ENGLISH PLANTAGO LANCEOLA [Suspect]
     Active Substance: PLANTAGO LANCEOLATA POLLEN
     Route: 003
     Dates: start: 20220204
  75. BASSIA SCOPARIA POLLEN [Suspect]
     Active Substance: BASSIA SCOPARIA POLLEN
     Route: 003
     Dates: start: 20220204
  76. ARTEMISIA TRIDENTATA POLLEN [Suspect]
     Active Substance: ARTEMISIA TRIDENTATA POLLEN
     Route: 003
     Dates: start: 20220204
  77. POLLENS - TREES, GUM, SWEET LIQUIDAMBAR STYRACIFLUA [Suspect]
     Active Substance: LIQUIDAMBAR STYRACIFLUA POLLEN
     Route: 003
     Dates: start: 20220204
  78. STANDARDIZED BERMUDA GRASS [Suspect]
     Active Substance: CYNODON DACTYLON POLLEN
     Route: 003
     Dates: start: 20220204

REACTIONS (1)
  - Administration site discolouration [Recovering/Resolving]

NARRATIVE: CASE EVENT DATE: 20220204
